FAERS Safety Report 13665381 (Version 2)
Quarter: 2017Q3

REPORT INFORMATION
  Report Type: Spontaneous
  Country: FR (occurrence: FR)
  Receive Date: 20170619
  Receipt Date: 20170707
  Transmission Date: 20171127
  Serious: Yes (Other)
  Sender: FDA-Public Use
  Company Number: FR-BAYER-2017-113354

PATIENT
  Age: 53 Year
  Sex: Female
  Weight: 92 kg

DRUGS (1)
  1. MIRENA [Suspect]
     Active Substance: LEVONORGESTREL
     Dosage: 20 MCG/24HR, CONT
     Route: 015
     Dates: start: 201009, end: 201611

REACTIONS (8)
  - Weight increased [Recovered/Resolved]
  - Depression [Recovered/Resolved]
  - Vaginal infection [Recovered/Resolved]
  - Urinary tract infection [Recovered/Resolved]
  - Neck pain [Recovered/Resolved]
  - Abdominal pain upper [Recovered/Resolved]
  - Headache [Recovering/Resolving]
  - Libido decreased [Recovered/Resolved]
